FAERS Safety Report 7427839-2 (Version None)
Quarter: 2011Q2

REPORT INFORMATION
  Report Type: 
  Country: None (occurrence: None)
  Receive Date: 20110415
  Receipt Date: 20110415
  Transmission Date: 20111010
  Serious: Yes (Other)
  Sender: FDA-Public Use
  Company Number: None

PATIENT
  Sex: Male

DRUGS (5)
  1. KEPPRA [Concomitant]
  2. ZONEGRAN [Suspect]
     Indication: CONVULSION
     Dosage: 2 TABS QAM ORALLY 1 TAB QHS ORALLY
     Route: 048
     Dates: start: 20090101
  3. ZONEGRAN [Suspect]
     Indication: LENNOX-GASTAUT SYNDROME
     Dosage: 2 TABS QAM ORALLY 1 TAB QHS ORALLY
     Route: 048
     Dates: start: 20090101
  4. TRANXENE [Concomitant]
  5. FELBATOL [Concomitant]

REACTIONS (3)
  - PRODUCT SUBSTITUTION ISSUE [None]
  - CONVULSION [None]
  - CONDITION AGGRAVATED [None]
